FAERS Safety Report 23315218 (Version 1)
Quarter: 2023Q4

REPORT INFORMATION
  Report Type: Spontaneous
  Country: PL (occurrence: PL)
  Receive Date: 20231219
  Receipt Date: 20231219
  Transmission Date: 20240110
  Serious: Yes (Hospitalization)
  Sender: FDA-Public Use
  Company Number: None

PATIENT
  Age: 85 Year
  Sex: Female

DRUGS (9)
  1. MESALAMINE [Suspect]
     Active Substance: MESALAMINE
     Indication: Product used for unknown indication
     Dosage: 1X1?1 G
     Route: 065
     Dates: start: 20210513, end: 20210611
  2. ACETAMINOPHEN\TRAMADOL HYDROCHLORIDE [Suspect]
     Active Substance: ACETAMINOPHEN\TRAMADOL HYDROCHLORIDE
     Indication: Product used for unknown indication
     Dosage: 1-0-1; APPROXIMATE USE TIME: BEFORE 13.05.2021 TO 11.06.2022?5 MG + 650 MG
     Route: 048
     Dates: end: 20210611
  3. MESALAMINE [Suspect]
     Active Substance: MESALAMINE
     Indication: Product used for unknown indication
     Dosage: 3X2?500 MG ENTERAL TABLET
     Route: 065
     Dates: start: 20210513, end: 20210611
  4. LOPERAMIDE [Concomitant]
     Active Substance: LOPERAMIDE
     Indication: Product used for unknown indication
     Dosage: 2-0-2?WZF 2 MG
  5. FLAREX [Concomitant]
     Active Substance: FLUOROMETHOLONE ACETATE
     Indication: Product used for unknown indication
     Dosage: TO THE RIGHT EYE 1-0-0?1 MG/ML
  6. Vertix [Concomitant]
     Indication: Product used for unknown indication
     Dosage: 1/2-0-1/2?24 MG TABLETS
  7. CONTROLOC [Suspect]
     Active Substance: PANTOPRAZOLE SODIUM
     Indication: Product used for unknown indication
     Dosage: 1X1?20 MG ENTERAL TABLETS
     Route: 065
     Dates: start: 20210513, end: 20210611
  8. COSOPT [Concomitant]
     Active Substance: DORZOLAMIDE HYDROCHLORIDE\TIMOLOL MALEATE
     Indication: Product used for unknown indication
     Dosage: 1-0-1?20 MG/ML + 5 MG/ML
  9. ALPHAGAN P [Concomitant]
     Active Substance: BRIMONIDINE TARTRATE
     Indication: Product used for unknown indication
     Dosage: TO THE LEFT EYE 1-0-1?2 MG/ML

REACTIONS (4)
  - Hypokalaemia [Unknown]
  - Diarrhoea [Unknown]
  - Iron deficiency anaemia [Unknown]
  - Anaemia vitamin B12 deficiency [Unknown]

NARRATIVE: CASE EVENT DATE: 20220601
